FAERS Safety Report 4326013-6 (Version None)
Quarter: 2004Q1

REPORT INFORMATION
  Report Type: 
  Country: None (occurrence: None)
  Receive Date: 20040323
  Receipt Date: 20040318
  Transmission Date: 20041129
  Serious: Yes (Disabling)
  Sender: FDA-Public Use
  Company Number: HQ6164320SEP2001

PATIENT
  Age: 50 Year
  Sex: Male
  Weight: 65.3 kg

DRUGS (3)
  1. DIMETAPP [Suspect]
     Indication: NASOPHARYNGITIS
     Dosage: ORAL
     Route: 048
     Dates: start: 20000401
  2. ALKA-SELTZER PLUS COLD (ACETYLSALICYLIC ACID/CHLORPHENAMINE MALEATE/PH [Suspect]
     Indication: NASOPHARYNGITIS
     Dosage: ORAL
     Route: 048
     Dates: start: 20000401
  3. ALKA-SELTZER PLUS NIGHT-TIME COLD (DEXTROMETHORPHAN HYDROBROMIDE/DOXYL [Suspect]
     Indication: NASOPHARYNGITIS
     Dosage: ORAL
     Route: 048
     Dates: start: 20000401

REACTIONS (1)
  - CEREBROVASCULAR ACCIDENT [None]
